FAERS Safety Report 9552509 (Version 1)
Quarter: 2013Q2

REPORT INFORMATION
  Report Type: Spontaneous
  Country: US (occurrence: None)
  Receive Date: 20130524
  Receipt Date: 20130524
  Transmission Date: 20140414
  Serious: No
  Sender: FDA-Public Use
  Company Number: PHEH2013US004743

PATIENT
  Age: 32 Year
  Sex: Female
  Weight: 81.6 kg

DRUGS (2)
  1. GILENYA [Suspect]
     Indication: MULTIPLE SCLEROSIS
     Route: 048
     Dates: start: 20130215
  2. MULTIVITAMINS [Concomitant]

REACTIONS (3)
  - Burning sensation [None]
  - Sensation of heaviness [None]
  - Dizziness [None]
